FAERS Safety Report 8301207-3 (Version None)
Quarter: 2012Q2

REPORT INFORMATION
  Report Type: 
  Country: None (occurrence: None)
  Receive Date: 20120420
  Receipt Date: 20120420
  Transmission Date: 20120825
  Serious: Yes (Other)
  Sender: FDA-Public Use
  Company Number: None

PATIENT
  Sex: Female
  Weight: 88.6 kg

DRUGS (1)
  1. PACLITAXEL [Suspect]
     Dosage: 325MG
     Route: 042

REACTIONS (4)
  - CHEST PAIN [None]
  - BACK PAIN [None]
  - HEADACHE [None]
  - INFUSION RELATED REACTION [None]
